FAERS Safety Report 8470180-X (Version None)
Quarter: 2012Q2

REPORT INFORMATION
  Report Type: 
  Country: None (occurrence: None)
  Receive Date: 20120621
  Receipt Date: 20120621
  Transmission Date: 20120825
  Serious: Yes (Other)
  Sender: FDA-Public Use
  Company Number: None

PATIENT
  Sex: Male

DRUGS (2)
  1. PRISTIQ [Concomitant]
  2. SULFAMETHOXAZOLE AND TRIMETHOPRIM [Suspect]
     Indication: SKIN INFECTION
     Dosage: TWICE A DAY PO
     Route: 048
     Dates: start: 20120612, end: 20120616

REACTIONS (7)
  - DYSPNOEA [None]
  - PHARYNGEAL OEDEMA [None]
  - URTICARIA [None]
  - ORAL DISORDER [None]
  - OROPHARYNGEAL PAIN [None]
  - ORAL MUCOSAL BLISTERING [None]
  - RASH GENERALISED [None]
